FAERS Safety Report 7898132-9 (Version None)
Quarter: 2011Q4

REPORT INFORMATION
  Report Type: 
  Country: None (occurrence: None)
  Receive Date: 20111107
  Receipt Date: 20111102
  Transmission Date: 20120403
  Serious: Yes (Other)
  Sender: FDA-Public Use
  Company Number: GB-PFIZER INC-2011207624

PATIENT
  Age: 74 Year

DRUGS (8)
  1. TRETINOIN [Suspect]
     Indication: ACUTE MYELOID LEUKAEMIA
     Dosage: UNK
     Dates: start: 20110712
  2. IDARUBICIN HCL [Suspect]
     Indication: MYELODYSPLASTIC SYNDROME
  3. GEMTUZUMAB OZOGAMICIN [Suspect]
     Indication: ACUTE MYELOID LEUKAEMIA
     Dosage: 6 MG/M2, UNK
     Dates: start: 20110712
  4. SANDO K [Concomitant]
     Dosage: UNK
  5. GEMTUZUMAB OZOGAMICIN [Suspect]
     Indication: MYELODYSPLASTIC SYNDROME
  6. TRETINOIN [Suspect]
     Indication: MYELODYSPLASTIC SYNDROME
  7. DEXAMETHASONE [Concomitant]
     Dosage: 2 MG, UNK
  8. IDARUBICIN HCL [Suspect]
     Indication: ACUTE MYELOID LEUKAEMIA
     Dosage: UNK
     Dates: start: 20110712

REACTIONS (1)
  - ALANINE AMINOTRANSFERASE INCREASED [None]
